FAERS Safety Report 9449174 (Version 2)
Quarter: 2013Q3

REPORT INFORMATION
  Report Type: Spontaneous
  Country: US (occurrence: None)
  Receive Date: 20130806
  Receipt Date: 20130830
  Transmission Date: 20140515
  Serious: Yes (Hospitalization, Other)
  Sender: FDA-Public Use
  Company Number: ADR-2013-01310

PATIENT
  Age: 42 Year
  Sex: Male

DRUGS (1)
  1. BACLOFEN [Suspect]
     Indication: MUSCLE SPASTICITY

REACTIONS (7)
  - Drug ineffective [None]
  - Mobility decreased [None]
  - Joint range of motion decreased [None]
  - Muscle spasticity [None]
  - Abasia [None]
  - Injury [None]
  - Muscle spasticity [None]
